FAERS Safety Report 8915446 (Version 2)
Quarter: 2012Q4

REPORT INFORMATION
  Report Type: 
  Country: US (occurrence: US)
  Receive Date: 20121119
  Receipt Date: 20121130
  Transmission Date: 20130627
  Serious: No
  Sender: FDA-Public Use
  Company Number: US-PFIZER INC-2012284628

PATIENT
  Age: 62 Year
  Sex: Female
  Weight: 81.63 kg

DRUGS (7)
  1. TOVIAZ [Suspect]
     Indication: OVERACTIVE BLADDER
     Dosage: 4 mg, 1x/day
     Route: 048
     Dates: start: 20120910, end: 201210
  2. TOVIAZ [Suspect]
     Dosage: 8 mg, 1x/day
     Route: 048
     Dates: start: 20121010, end: 20121105
  3. HYDROXYZINE PAMOATE [Suspect]
     Indication: INSOMNIA
     Dosage: 25 mg, 1x/day
     Dates: start: 201210, end: 20121028
  4. HYDROXYZINE PAMOATE [Suspect]
     Indication: INSOMNIA
  5. CALCIUM/VITAMIN D [Concomitant]
     Dosage: UNK, 2x/day
  6. FISH OIL [Concomitant]
     Dosage: 2000 mg, 2x/day
  7. OMEPRAZOLE [Concomitant]
     Dosage: 20 mg, 1x/day

REACTIONS (9)
  - Drug ineffective [Unknown]
  - Muscle disorder [Recovering/Resolving]
  - Pain [Recovering/Resolving]
  - Insomnia [Recovered/Resolved]
  - Dry mouth [Recovering/Resolving]
  - Bladder spasm [Recovering/Resolving]
  - Mood swings [Recovering/Resolving]
  - Dizziness [Unknown]
  - Drug intolerance [Unknown]
